FAERS Safety Report 10167581 (Version 1)
Quarter: 2014Q2

REPORT INFORMATION
  Report Type: Spontaneous
  Country: US (occurrence: US)
  Receive Date: 20140512
  Receipt Date: 20140512
  Transmission Date: 20141212
  Serious: No
  Sender: FDA-Public Use
  Company Number: US-PFIZER INC-2014124906

PATIENT
  Age: 75 Year
  Sex: Female
  Weight: 100 kg

DRUGS (3)
  1. CLINDAMYCIN HCL [Suspect]
     Indication: DENTAL IMPLANTATION
     Dosage: UNK
  2. ATORVASTATIN [Interacting]
     Indication: BLOOD CHOLESTEROL INCREASED
     Dosage: 20 MG, DAILY
     Dates: end: 201404
  3. WARFARIN [Concomitant]
     Indication: CARDIAC DISORDER
     Dosage: 7.5 MG, DAILY

REACTIONS (1)
  - Drug interaction [Unknown]
